FAERS Safety Report 11371411 (Version 2)
Quarter: 2015Q4

REPORT INFORMATION
  Report Type: Spontaneous
  Country: US (occurrence: US)
  Receive Date: 20150812
  Receipt Date: 20151104
  Transmission Date: 20160304
  Serious: Yes (Hospitalization, Other)
  Sender: FDA-Public Use
  Company Number: US-TEVA-585019USA

PATIENT
  Age: 38 Year
  Sex: Female

DRUGS (3)
  1. METHADONE [Suspect]
     Active Substance: METHADONE HYDROCHLORIDE
     Route: 065
  2. CLONAZEPAM. [Suspect]
     Active Substance: CLONAZEPAM
     Dosage: 2 MILLIGRAM DAILY;
     Route: 048
  3. KLONOPIN [Suspect]
     Active Substance: CLONAZEPAM
     Dosage: 2 MILLIGRAM DAILY;
     Route: 048

REACTIONS (10)
  - Hypothyroidism [Unknown]
  - Withdrawal syndrome [Unknown]
  - Surgery [Unknown]
  - Suicidal ideation [Recovered/Resolved]
  - Bipolar I disorder [Unknown]
  - Suspected counterfeit product [Unknown]
  - Drug abuse [Recovered/Resolved]
  - Drug abuse [Unknown]
  - Pain [Unknown]
  - Poor quality sleep [Unknown]

NARRATIVE: CASE EVENT DATE: 201408
